FAERS Safety Report 18179787 (Version 1)
Quarter: 2020Q3

REPORT INFORMATION
  Report Type: Spontaneous
  Country: US (occurrence: US)
  Receive Date: 20200820
  Receipt Date: 20200820
  Transmission Date: 20201103
  Serious: No
  Sender: FDA-Public Use
  Company Number: None

PATIENT
  Age: 33 Year
  Sex: Female
  Weight: 73.35 kg

DRUGS (7)
  1. NORETHINDRONE ACET/ETHINYL 1 MG/0/02 MG MYLAN/FAMY CARE [Concomitant]
     Active Substance: ETHINYL ESTRADIOL\NORETHINDRONE ACETATE
  2. COENZYME Q10 [Concomitant]
     Active Substance: DIETARY SUPPLEMENT\UBIDECARENONE
  3. MAGNESIUM [Concomitant]
     Active Substance: MAGNESIUM
  4. VITAMIN D [Concomitant]
     Active Substance: VITAMIN D NOS
  5. EMGALITY [Suspect]
     Active Substance: GALCANEZUMAB-GNLM
     Indication: MIGRAINE
     Dates: start: 20200616, end: 20200813
  6. RIZATRIPAN [Concomitant]
  7. NAPROXEN. [Concomitant]
     Active Substance: NAPROXEN

REACTIONS (9)
  - Paraesthesia [None]
  - Drug ineffective [None]
  - Fatigue [None]
  - Depression [None]
  - Arthralgia [None]
  - Abdominal pain [None]
  - Weight increased [None]
  - Nausea [None]
  - Decreased appetite [None]
